FAERS Safety Report 22020794 (Version 1)
Quarter: 2023Q1

REPORT INFORMATION
  Report Type: Spontaneous
  Country: US (occurrence: None)
  Receive Date: 20230217
  Receipt Date: 20230217
  Transmission Date: 20230417
  Serious: Yes (Death)
  Sender: FDA-Public Use
  Company Number: None

PATIENT
  Age: 23 Year

DRUGS (1)
  1. MISOPROSTOL [Suspect]
     Active Substance: MISOPROSTOL
     Indication: Menstruation delayed
     Dosage: OTHER FREQUENCY : 3 DOSES;800  UG MICROGRAMS 3 DOSES BUCAL
     Route: 002
     Dates: start: 20220525, end: 20220525

REACTIONS (4)
  - Abdominal pain [None]
  - Urinary tract infection [None]
  - Ruptured ectopic pregnancy [None]
  - Abdominal infection [None]

NARRATIVE: CASE EVENT DATE: 20220607
